FAERS Safety Report 23507979 (Version 1)
Quarter: 2024Q1

REPORT INFORMATION
  Report Type: Report from Study
  Country: US (occurrence: US)
  Receive Date: 20240209
  Receipt Date: 20240209
  Transmission Date: 20240410
  Serious: Yes (Death, Other)
  Sender: FDA-Public Use
  Company Number: US-PFIZER INC-PV202300210103

PATIENT
  Age: 72 Year
  Sex: Male

DRUGS (3)
  1. INLYTA [Suspect]
     Active Substance: AXITINIB
     Indication: Renal cell carcinoma
     Dosage: 5 MG, TWICE DAILY
     Route: 048
     Dates: start: 20231214, end: 202312
  2. INLYTA [Suspect]
     Active Substance: AXITINIB
     Dosage: 2.5 MG, TWICE DAILY
     Route: 048
     Dates: start: 202312
  3. INLYTA [Suspect]
     Active Substance: AXITINIB
     Dosage: 3 MG, TWICE DAILY
     Route: 048

REACTIONS (6)
  - Death [Fatal]
  - Fatigue [Unknown]
  - Nausea [Unknown]
  - Decreased appetite [Unknown]
  - Wrong technique in product usage process [Unknown]
  - Intentional dose omission [Unknown]

NARRATIVE: CASE EVENT DATE: 20231201
